FAERS Safety Report 6654643-5 (Version None)
Quarter: 2010Q1

REPORT INFORMATION
  Report Type: 
  Country: None (occurrence: None)
  Receive Date: 20100326
  Receipt Date: 20100323
  Transmission Date: 20100710
  Serious: Yes (Death, Other)
  Sender: FDA-Public Use
  Company Number: PHHY2010DE17720

PATIENT
  Age: 52 Year
  Sex: Female

DRUGS (5)
  1. CYCLOSPORINE [Suspect]
     Indication: IMMUNOSUPPRESSION
     Dosage: 100 MG DAILY
     Dates: end: 19950501
  2. METHYLPREDNISOLONE [Suspect]
     Dosage: 500 MG, UNK
     Route: 042
  3. PREDNISOLONE [Suspect]
     Dosage: 250 MG PER DAY
  4. PREDNISOLONE [Suspect]
     Dosage: 50 MG PER DAY
  5. PREDNISOLONE [Suspect]
     Dosage: 30 MG WITH IN MOUTH

REACTIONS (6)
  - ARTERIAL OCCLUSIVE DISEASE [None]
  - FRONTOTEMPORAL DEMENTIA [None]
  - HERPES ZOSTER [None]
  - JC VIRUS INFECTION [None]
  - PROGRESSIVE MULTIFOCAL LEUKOENCEPHALOPATHY [None]
  - VASCULITIS CEREBRAL [None]
